FAERS Safety Report 6268219-5 (Version None)
Quarter: 2009Q3

REPORT INFORMATION
  Report Type: 
  Country: None (occurrence: None)
  Receive Date: 20090715
  Receipt Date: 20090703
  Transmission Date: 20100115
  Serious: Yes (Other)
  Sender: FDA-Public Use
  Company Number: BR-JNJFOC-20090701641

PATIENT
  Age: 41 Year
  Sex: Male
  Weight: 90 kg

DRUGS (4)
  1. TYLEX [Suspect]
     Indication: PAIN
     Route: 065
  2. KETOPROFEN [Suspect]
     Indication: PAIN
  3. CODEINE SUL TAB [Suspect]
     Indication: PAIN
  4. ARADOIS [Concomitant]
     Indication: HYPERTENSION

REACTIONS (3)
  - AURICULAR SWELLING [None]
  - EYE SWELLING [None]
  - PRURITUS GENERALISED [None]
